FAERS Safety Report 19222647 (Version 3)
Quarter: 2021Q2

REPORT INFORMATION
  Report Type: Spontaneous
  Country: CA (occurrence: CA)
  Receive Date: 20210506
  Receipt Date: 20210521
  Transmission Date: 20210717
  Serious: Yes (Death, Hospitalization, Other)
  Sender: FDA-Public Use
  Company Number: CA-PFIZER INC-2021486041

PATIENT
  Age: 74 Year
  Sex: Male

DRUGS (1)
  1. DAURISMO [Suspect]
     Active Substance: GLASDEGIB
     Indication: ACUTE MYELOID LEUKAEMIA
     Dosage: 100 MG
     Dates: start: 20210128, end: 2021

REACTIONS (4)
  - Off label use [Unknown]
  - Ascites [Unknown]
  - Muscle spasms [Unknown]
  - Death [Fatal]

NARRATIVE: CASE EVENT DATE: 2021
